FAERS Safety Report 17042710 (Version 1)
Quarter: 2019Q4

REPORT INFORMATION
  Report Type: Spontaneous
  Country: US (occurrence: US)
  Receive Date: 20191115
  Receipt Date: 20191115
  Transmission Date: 20200122
  Serious: No
  Sender: FDA-Public Use
  Company Number: None

PATIENT
  Age: 37 Year
  Sex: Female
  Weight: 58.5 kg

DRUGS (1)
  1. DYSPORT [Suspect]
     Active Substance: ABOBOTULINUMTOXINA
     Indication: SKIN WRINKLING

REACTIONS (6)
  - Nervous system disorder [None]
  - Muscular weakness [None]
  - Product complaint [None]
  - Asthenia [None]
  - Gait disturbance [None]
  - Impaired work ability [None]

NARRATIVE: CASE EVENT DATE: 20110909
